FAERS Safety Report 18466451 (Version 1)
Quarter: 2020Q4

REPORT INFORMATION
  Report Type: Spontaneous
  Country: US (occurrence: US)
  Receive Date: 20201105
  Receipt Date: 20201105
  Transmission Date: 20210114
  Serious: No
  Sender: FDA-Public Use
  Company Number: US-ASTRAZENECA-2020SF34942

PATIENT
  Age: 67 Year
  Sex: Male

DRUGS (2)
  1. BYDUREON BCISE [Suspect]
     Active Substance: EXENATIDE
     Indication: TYPE 2 DIABETES MELLITUS
     Route: 058
     Dates: start: 2020
  2. BYETTA [Concomitant]
     Active Substance: EXENATIDE
     Route: 058

REACTIONS (2)
  - Device issue [Unknown]
  - Injection site nodule [Recovered/Resolved]
